FAERS Safety Report 17770310 (Version 1)
Quarter: 2020Q2

REPORT INFORMATION
  Report Type: Spontaneous
  Country: US (occurrence: US)
  Receive Date: 20200512
  Receipt Date: 20200512
  Transmission Date: 20200714
  Serious: No
  Sender: FDA-Public Use
  Company Number: US-009507513-2005USA001218

PATIENT
  Age: 29 Year
  Sex: Female
  Weight: 84.35 kg

DRUGS (1)
  1. NUVARING [Suspect]
     Active Substance: ETHINYL ESTRADIOL\ETONOGESTREL
     Indication: CONTRACEPTION
     Dosage: 1 RING
     Route: 067

REACTIONS (6)
  - Product quality issue [Unknown]
  - Device difficult to use [Unknown]
  - Poor quality device used [Unknown]
  - Device physical property issue [Unknown]
  - Device expulsion [Unknown]
  - Complication of device insertion [Unknown]
